FAERS Safety Report 5874654-7 (Version None)
Quarter: 2008Q3

REPORT INFORMATION
  Report Type: 
  Country: None (occurrence: None)
  Receive Date: 20080909
  Receipt Date: 20080801
  Transmission Date: 20090109
  Serious: Yes (Other)
  Sender: FDA-Public Use
  Company Number: DE-JNJFOC-20080800903

PATIENT
  Age: 81 Year
  Sex: Female

DRUGS (1)
  1. BETADORM D [Suspect]
     Indication: SLEEP DISORDER
     Route: 048

REACTIONS (3)
  - ASTHENIA [None]
  - CONFUSIONAL STATE [None]
  - HALLUCINATION, VISUAL [None]
